FAERS Safety Report 23497082 (Version 1)
Quarter: 2024Q1

REPORT INFORMATION
  Report Type: Spontaneous
  Country: US (occurrence: None)
  Receive Date: 20240207
  Receipt Date: 20240207
  Transmission Date: 20240410
  Serious: No
  Sender: FDA-Public Use
  Company Number: US-ROCHE-3424959

PATIENT
  Age: 31 Year
  Sex: Female
  Weight: 65.83 kg

DRUGS (3)
  1. XOLAIR [Suspect]
     Active Substance: OMALIZUMAB
     Indication: Urticaria chronic
     Dosage: 2-150MG PREFILLED SYRINGES EVERY 28 DAYS
     Route: 058
     Dates: start: 2016
  2. XOLAIR [Suspect]
     Active Substance: OMALIZUMAB
  3. XOLAIR [Suspect]
     Active Substance: OMALIZUMAB

REACTIONS (5)
  - Underdose [Unknown]
  - Pain [Unknown]
  - Skin abrasion [Unknown]
  - Haemorrhage [Unknown]
  - Needle issue [Unknown]

NARRATIVE: CASE EVENT DATE: 20230915
